FAERS Safety Report 7552820-2 (Version None)
Quarter: 2011Q2

REPORT INFORMATION
  Report Type: 
  Country: None (occurrence: None)
  Receive Date: 20110616
  Receipt Date: 20110613
  Transmission Date: 20111010
  Serious: Yes (Hospitalization)
  Sender: FDA-Public Use
  Company Number: US-ROXANE LABORATORIES, INC.-2011-RO-00810RO

PATIENT
  Age: 11 Year
  Sex: Male
  Weight: 36 kg

DRUGS (8)
  1. PROPOFOL [Suspect]
     Indication: GENERAL ANAESTHESIA
  2. ANTICHOLINESTERASE [Suspect]
     Indication: ANAESTHESIA REVERSAL
  3. PROPRANOLOL [Suspect]
     Indication: ARRHYTHMIA PROPHYLAXIS
  4. PENTOTHAL [Suspect]
     Indication: GENERAL ANAESTHESIA
  5. PANCURONIUM BROMIDE [Suspect]
     Indication: GENERAL ANAESTHESIA
  6. ISOFLURANE [Suspect]
     Indication: GENERAL ANAESTHESIA
  7. ANTICHOLINERGIC [Suspect]
     Indication: ANAESTHESIA REVERSAL
  8. ONDANSETRON [Suspect]
     Indication: PROPHYLAXIS OF NAUSEA AND VOMITING

REACTIONS (1)
  - TORSADE DE POINTES [None]
